FAERS Safety Report 9849832 (Version 1)
Quarter: 2014Q1

REPORT INFORMATION
  Report Type: Spontaneous
  Country: US (occurrence: US)
  Receive Date: 20140128
  Receipt Date: 20140128
  Transmission Date: 20141002
  Serious: No
  Sender: FDA-Public Use
  Company Number: US-PFIZER INC-2014022777

PATIENT
  Sex: Female

DRUGS (5)
  1. AMPICILLIN [Suspect]
     Dosage: UNK
  2. MEDROL [Suspect]
     Dosage: UNK
  3. FELDENE [Suspect]
     Dosage: UNK
  4. INDOCIN [Suspect]
     Dosage: UNK
  5. LEVAQUIN [Suspect]
     Dosage: UNK

REACTIONS (2)
  - Drug hypersensitivity [Unknown]
  - Nausea [Unknown]
